FAERS Safety Report 9001436 (Version 1)
Quarter: 2013Q1

REPORT INFORMATION
  Report Type: Spontaneous
  Country: US (occurrence: US)
  Receive Date: 20130107
  Receipt Date: 20130107
  Transmission Date: 20140127
  Serious: Yes (Death)
  Sender: FDA-Public Use
  Company Number: US-ASTRAZENECA-2013SE00559

PATIENT
  Age: 47 Year
  Sex: Female

DRUGS (5)
  1. QUETIAPINE [Suspect]
     Route: 048
  2. VENLAFAXINE [Suspect]
     Route: 048
  3. DIAZEPAM [Suspect]
     Route: 048
  4. ZOLPIDEM [Suspect]
     Route: 048
  5. OXYCODONE [Suspect]
     Route: 048

REACTIONS (2)
  - Drug abuse [Fatal]
  - Toxicity to various agents [Fatal]
